FAERS Safety Report 7547178-9 (Version None)
Quarter: 2011Q2

REPORT INFORMATION
  Report Type: 
  Country: None (occurrence: None)
  Receive Date: 20110614
  Receipt Date: 20110610
  Transmission Date: 20111010
  Serious: Yes (Death)
  Sender: FDA-Public Use
  Company Number: PHHY2011JP51406

PATIENT
  Sex: Male
  Weight: 62 kg

DRUGS (15)
  1. CARVEDILOL [Concomitant]
     Dosage: 7.5 MG, UNK
     Route: 048
  2. CARVEDILOL [Concomitant]
     Dosage: 10 MG, UNK
     Route: 048
  3. MUCOSTA [Concomitant]
     Dosage: 100 MG, UNK
     Route: 048
     Dates: start: 20071220
  4. WARFARIN SODIUM [Concomitant]
     Dosage: 2 MG, UNK
     Route: 048
     Dates: start: 20071218, end: 20080101
  5. ENALAPRIL MALEATE [Concomitant]
     Indication: HYPERTENSION
     Dosage: 5 MG, UNK
     Route: 048
     Dates: start: 20071118, end: 20071213
  6. CARVEDILOL [Concomitant]
     Indication: HYPERTENSION
     Dosage: 2.5 MG, UNK
     Route: 048
     Dates: start: 20101212
  7. FAMOTIDINE [Concomitant]
     Dosage: 10 MG, UNK
     Route: 048
     Dates: start: 20071215
  8. VALSARTAN [Suspect]
     Dosage: 80 MG, QD
     Route: 048
     Dates: start: 20080125
  9. CARVEDILOL [Concomitant]
     Dosage: 5 MG, UNK
     Route: 048
  10. CRESTOR [Concomitant]
     Dosage: 2.5 MG, UNK
     Route: 048
     Dates: start: 20071124
  11. ALDACTONE [Concomitant]
     Dosage: 25 MG, UNK
     Route: 048
     Dates: start: 20071118, end: 20080530
  12. LASIX [Concomitant]
     Dosage: 20 MG, UNK
     Route: 048
     Dates: start: 20071118
  13. ASPIRIN [Concomitant]
     Dosage: 100 MG, UNK
     Route: 048
     Dates: start: 20071220
  14. NORVASC [Concomitant]
     Indication: HYPERTENSION
     Dosage: 5 MG, UNK
     Route: 048
     Dates: start: 20071124
  15. NORVASC [Concomitant]
     Dosage: 5 MG, UNK
     Route: 048

REACTIONS (3)
  - VENTRICULAR FIBRILLATION [None]
  - HYPERKALAEMIA [None]
  - RENAL FAILURE ACUTE [None]
